FAERS Safety Report 13931339 (Version 3)
Quarter: 2017Q3

REPORT INFORMATION
  Report Type: Spontaneous
  Country: RU (occurrence: RU)
  Receive Date: 20170903
  Receipt Date: 20170922
  Transmission Date: 20171127
  Serious: Yes (Hospitalization)
  Sender: FDA-Public Use
  Company Number: RU-ASTRAZENECA-2017SE88924

PATIENT
  Age: 62 Year
  Sex: Male
  Weight: 70 kg

DRUGS (6)
  1. BRILINTA [Suspect]
     Active Substance: TICAGRELOR
     Indication: MYOCARDIAL INFARCTION
     Route: 048
     Dates: start: 201705
  2. ATORVASTATIN [Concomitant]
     Active Substance: ATORVASTATIN
  3. PREDUCTAL [Concomitant]
     Active Substance: TRIMETAZIDINE DIHYDROCHLORIDE
     Dates: start: 201705, end: 201707
  4. LORISTA [Concomitant]
     Active Substance: LOSARTAN POTASSIUM
     Dates: start: 201707
  5. ASPIRIN CARDIO [Concomitant]
     Active Substance: ASPIRIN
  6. NOLPAZA [Concomitant]
     Active Substance: PANTOPRAZOLE SODIUM

REACTIONS (4)
  - Blood pressure increased [Recovering/Resolving]
  - Blood glucose increased [Unknown]
  - Chest pain [Not Recovered/Not Resolved]
  - Osteochondrosis [Not Recovered/Not Resolved]

NARRATIVE: CASE EVENT DATE: 20170817
